FAERS Safety Report 11981984 (Version 1)
Quarter: 2016Q1

REPORT INFORMATION
  Report Type: Spontaneous
  Country: IN (occurrence: IN)
  Receive Date: 20160201
  Receipt Date: 20160201
  Transmission Date: 20160526
  Serious: Yes (Death, Other)
  Sender: FDA-Public Use
  Company Number: IN-ALEMBIC PHARMACUETICALS LIMITED-2016SCAL000072

PATIENT

DRUGS (1)
  1. METOPROLOL TARTRATE. [Suspect]
     Active Substance: METOPROLOL TARTRATE
     Indication: ACUTE MYOCARDIAL INFARCTION
     Dosage: UNK

REACTIONS (7)
  - Angina pectoris [Unknown]
  - Atrioventricular block complete [Unknown]
  - Cardiac failure [Unknown]
  - Death [Fatal]
  - Atrioventricular block first degree [Unknown]
  - Tachyarrhythmia [Unknown]
  - Myocardial infarction [Unknown]
